FAERS Safety Report 7682764-7 (Version None)
Quarter: 2011Q3

REPORT INFORMATION
  Report Type: 
  Country: None (occurrence: None)
  Receive Date: 20110812
  Receipt Date: 20110812
  Transmission Date: 20111222
  Serious: Yes (Hospitalization)
  Sender: FDA-Public Use
  Company Number: None

PATIENT
  Age: 62 Year
  Sex: Male
  Weight: 95.5 kg

DRUGS (2)
  1. POLYETHYLENE GLYCOL [Suspect]
     Indication: BOWEL PREPARATION
     Dosage: 17 GM PRN PO
     Route: 048
     Dates: start: 20110601
  2. HYDROCHLOROTHIAZIDE [Suspect]
     Indication: HYPERTENSION
     Dosage: 37.5 MG EVERY DAY PO
     Route: 048
     Dates: start: 20070108, end: 20110602

REACTIONS (3)
  - CONVULSION [None]
  - UNRESPONSIVE TO STIMULI [None]
  - HYPONATRAEMIA [None]
